FAERS Safety Report 8201836-1 (Version None)
Quarter: 2012Q1

REPORT INFORMATION
  Report Type: 
  Country: None (occurrence: None)
  Receive Date: 20120312
  Receipt Date: 20120302
  Transmission Date: 20120608
  Serious: Yes (Other)
  Sender: FDA-Public Use
  Company Number: US-RB-035796-12

PATIENT
  Age: 6 Year
  Sex: Female
  Weight: 20 kg

DRUGS (1)
  1. MUCINEX CHILDREN'S COUGH CHERRY SUPPRESSANT [Suspect]
     Indication: PRODUCT USED FOR UNKNOWN INDICATION
     Dosage: 29-FEB-2012- 5 ML IN THE A.M. 10 ML IN THE P.M.
     Route: 048
     Dates: start: 20120229

REACTIONS (1)
  - LIP SWELLING [None]
